FAERS Safety Report 9276382 (Version 1)
Quarter: 2013Q2

REPORT INFORMATION
  Report Type: Spontaneous
  Country: US (occurrence: US)
  Receive Date: 20130507
  Receipt Date: 20130507
  Transmission Date: 20140414
  Serious: Yes (Other)
  Sender: FDA-Public Use
  Company Number: US-GLAXOSMITHKLINE-A1022499A

PATIENT
  Age: 60 Year
  Sex: Female

DRUGS (3)
  1. ADVAIR [Suspect]
     Indication: ASTHMA
     Dosage: 1PUFF PER DAY
     Route: 055
     Dates: start: 2011, end: 2011
  2. DUONEB [Concomitant]
  3. NEXIUM [Concomitant]

REACTIONS (2)
  - Pharyngeal haemorrhage [Recovered/Resolved]
  - Dry throat [Recovered/Resolved]
